FAERS Safety Report 9258650 (Version 1)
Quarter: 2013Q2

REPORT INFORMATION
  Report Type: Spontaneous
  Country: US (occurrence: None)
  Receive Date: 20130425
  Receipt Date: 20130425
  Transmission Date: 20140414
  Serious: Yes (Life-Threatening, Hospitalization)
  Sender: FDA-Public Use
  Company Number: None

PATIENT
  Age: 48 Year
  Sex: Male
  Weight: 147.5 kg

DRUGS (2)
  1. LISINOPRIL [Suspect]
     Indication: DIABETES MELLITUS
     Dates: start: 20100827, end: 20130424
  2. LISINOPRIL [Suspect]
     Indication: HYPERTENSION
     Dates: start: 20100827, end: 20130424

REACTIONS (2)
  - Swollen tongue [None]
  - Angioedema [None]
